FAERS Safety Report 7597720-7 (Version None)
Quarter: 2011Q3

REPORT INFORMATION
  Report Type: 
  Country: None (occurrence: None)
  Receive Date: 20110708
  Receipt Date: 20110701
  Transmission Date: 20111222
  Serious: Yes (Other)
  Sender: FDA-Public Use
  Company Number: US-GLAXOSMITHKLINE-A0935242A

PATIENT
  Age: 43 Year
  Sex: Male
  Weight: 83.9 kg

DRUGS (3)
  1. PAXIL [Suspect]
     Indication: DEPRESSION
     Route: 065
  2. XANAX [Suspect]
     Indication: PANIC DISORDER
     Dosage: .5MG SEE DOSAGE TEXT
     Route: 048
     Dates: start: 19870101
  3. NO CONCURRENT MEDICATION [Concomitant]

REACTIONS (7)
  - DEPRESSION [None]
  - WEIGHT DECREASED [None]
  - HYPERTENSION [None]
  - FEELING ABNORMAL [None]
  - HEART RATE DECREASED [None]
  - BALANCE DISORDER [None]
  - DIABETES MELLITUS [None]
